FAERS Safety Report 24462716 (Version 1)
Quarter: 2024Q4

REPORT INFORMATION
  Report Type: Spontaneous
  Country: FR (occurrence: FR)
  Receive Date: 20241018
  Receipt Date: 20241018
  Transmission Date: 20250114
  Serious: Yes (Other)
  Sender: BAXTER
  Company Number: None

PATIENT
  Age: 100 Year
  Sex: Male

DRUGS (1)
  1. SCOPOLAMINE [Suspect]
     Active Substance: SCOPOLAMINE
     Indication: Bronchial wall thickening
     Dosage: 1 DOSAGE FORM 1 TOTAL
     Route: 058
     Dates: start: 20240923, end: 20240924

REACTIONS (5)
  - Product prescribing issue [Recovered/Resolved]
  - Agitation [Not Recovered/Not Resolved]
  - Urinary retention [Recovered/Resolved]
  - Confusional state [Not Recovered/Not Resolved]
  - Hallucination [Recovered/Resolved]

NARRATIVE: CASE EVENT DATE: 20240923
